FAERS Safety Report 9684605 (Version 1)
Quarter: 2013Q4

REPORT INFORMATION
  Report Type: Spontaneous
  Country: US (occurrence: None)
  Receive Date: 20131108
  Receipt Date: 20131108
  Transmission Date: 20140711
  Serious: Yes (Death)
  Sender: FDA-Public Use
  Company Number: 20130104

PATIENT
  Age: 54 Year
  Sex: Female

DRUGS (1)
  1. SUBSYS [Suspect]
     Indication: CANCER PAIN

REACTIONS (1)
  - Death [None]
